FAERS Safety Report 7767693-2 (Version None)
Quarter: 2011Q3

REPORT INFORMATION
  Report Type: 
  Country: None (occurrence: None)
  Receive Date: 20110910
  Receipt Date: 20110901
  Transmission Date: 20111222
  Serious: Yes (Other)
  Sender: FDA-Public Use
  Company Number: 2011P1008692

PATIENT
  Age: 6 Week
  Sex: Male
  Weight: 4.536 kg

DRUGS (3)
  1. GRIPE WATER [Concomitant]
  2. CLOTRIMAZOLE AND BETAMETHASONE DIPROPIONATE [Suspect]
     Indication: DERMATITIS DIAPER
     Dosage: TID;TOP
     Route: 061
     Dates: start: 20110901
  3. CLOTRIMAZOLE AND BETAMETHASONE DIPROPIONATE [Suspect]
     Indication: DERMATITIS DIAPER
     Dosage: TID;TOP
     Route: 061
     Dates: start: 20110829, end: 20110831

REACTIONS (8)
  - CRYING [None]
  - CHOKING [None]
  - DYSPNOEA [None]
  - CONVULSION [None]
  - GASTROOESOPHAGEAL REFLUX DISEASE [None]
  - VOMITING PROJECTILE [None]
  - ERUCTATION [None]
  - FLATULENCE [None]
